FAERS Safety Report 10160573 (Version 4)
Quarter: 2014Q3

REPORT INFORMATION
  Report Type: Report from Study
  Country: US (occurrence: US)
  Receive Date: 20140508
  Receipt Date: 20140722
  Transmission Date: 20150326
  Serious: Yes (Hospitalization, Other)
  Sender: FDA-Public Use
  Company Number: US-ALEXION PHARMACEUTICALS INC.-A201401660

PATIENT

DRUGS (1)
  1. SOLIRIS [Suspect]
     Active Substance: ECULIZUMAB
     Indication: HAEMOLYTIC URAEMIC SYNDROME
     Dosage: 1200 MG, Q2W
     Route: 042
     Dates: start: 20140228

REACTIONS (9)
  - Blood creatinine increased [Unknown]
  - Influenza like illness [Unknown]
  - Nausea [Unknown]
  - Seroma [Not Recovered/Not Resolved]
  - Dehydration [Unknown]
  - Pyrexia [Unknown]
  - Central venous catheterisation [Not Recovered/Not Resolved]
  - Vomiting [Unknown]
  - Laboratory test abnormal [Unknown]

NARRATIVE: CASE EVENT DATE: 20140425
